FAERS Safety Report 9553116 (Version 1)
Quarter: 2013Q3

REPORT INFORMATION
  Report Type: Spontaneous
  Country: US (occurrence: US)
  Receive Date: 20130925
  Receipt Date: 20130925
  Transmission Date: 20140515
  Serious: No
  Sender: FDA-Public Use
  Company Number: US-B.I. PHARMACEUTICALS,INC./RIDGEFIELD-2013-BI-29343BP

PATIENT
  Age: 87 Year
  Sex: Female
  Weight: 44 kg

DRUGS (4)
  1. COMBIVENT [Suspect]
     Indication: CHRONIC OBSTRUCTIVE PULMONARY DISEASE
     Dosage: STRENGTH: 20 MCG / 100 MCG; DAILY DOSE: 120MCG/600MCG
     Route: 055
     Dates: start: 201308
  2. COMBIVENT [Suspect]
     Indication: CHRONIC OBSTRUCTIVE PULMONARY DISEASE
     Dosage: STRENGTH: 18 MCG / 103 MCG; DAILY DOSE: 144MCG/824MCG
     Route: 055
     Dates: start: 2010, end: 201307
  3. DIGOXIN [Concomitant]
     Indication: HEART RATE INCREASED
     Route: 048
  4. VERAPAMIL [Concomitant]
     Indication: HYPERTENSION
     Route: 048

REACTIONS (2)
  - Pruritus [Not Recovered/Not Resolved]
  - Scab [Not Recovered/Not Resolved]
